FAERS Safety Report 7091782-1 (Version None)
Quarter: 2010Q4

REPORT INFORMATION
  Report Type: 
  Country: None (occurrence: None)
  Receive Date: 20101101
  Receipt Date: 20101022
  Transmission Date: 20110411
  Serious: Yes (Death)
  Sender: FDA-Public Use
  Company Number: COM10-1377

PATIENT
  Age: 72 Year
  Sex: Female

DRUGS (8)
  1. HYDROCODONE [Suspect]
     Indication: PAIN
     Dates: start: 20080823, end: 20091122
  2. DIAZEPAM [Suspect]
     Indication: PAIN
     Dates: start: 20080823, end: 20091122
  3. HYDROCODONE BITARTRATE + ACETAMINOPHEN [Suspect]
     Indication: PAIN
     Dates: start: 20080823, end: 20091122
  4. CYCLOBENZAPRINE [Suspect]
     Indication: PAIN
     Dates: start: 20090823, end: 20091122
  5. MORPHINE [Concomitant]
  6. METHADONE HCL [Concomitant]
  7. LYRICA [Concomitant]
  8. HYDROMORPHONE HCL [Concomitant]

REACTIONS (9)
  - ANXIETY [None]
  - DELUSION [None]
  - DISORIENTATION [None]
  - FALL [None]
  - HALLUCINATION [None]
  - INADEQUATE ANALGESIA [None]
  - PARANOIA [None]
  - SOCIAL AVOIDANT BEHAVIOUR [None]
  - SOMNAMBULISM [None]
